APPROVED DRUG PRODUCT: NAPROXEN SODIUM
Active Ingredient: NAPROXEN SODIUM
Strength: EQ 500MG BASE
Dosage Form/Route: TABLET;ORAL
Application: A074242 | Product #002
Applicant: PLIVA INC
Approved: Jun 20, 1996 | RLD: No | RS: No | Type: DISCN